FAERS Safety Report 24341350 (Version 1)
Quarter: 2024Q3

REPORT INFORMATION
  Report Type: Report from Study
  Country: CA (occurrence: CA)
  Receive Date: 20240920
  Receipt Date: 20240920
  Transmission Date: 20241017
  Serious: Yes (Death, Hospitalization)
  Sender: ABBVIE
  Company Number: CA-ABBVIE-5929021

PATIENT
  Age: 61 Year
  Sex: Female

DRUGS (1)
  1. RINVOQ [Suspect]
     Active Substance: UPADACITINIB
     Indication: Crohn^s disease
     Route: 048
     Dates: start: 20240425

REACTIONS (9)
  - Death [Fatal]
  - Haemoglobin decreased [Unknown]
  - Odynophagia [Unknown]
  - Varicella zoster oesophagitis [Unknown]
  - Herpes simplex encephalitis [Unknown]
  - Pulseless electrical activity [Unknown]
  - Varicella [Unknown]
  - Aspiration [Unknown]
  - Impaired quality of life [Unknown]

NARRATIVE: CASE EVENT DATE: 20240101
